FAERS Safety Report 8573210-X (Version None)
Quarter: 2012Q2

REPORT INFORMATION
  Report Type: 
  Country: None (occurrence: None)
  Receive Date: 20120423
  Receipt Date: 20090514
  Transmission Date: 20120825
  Serious: Yes (Other)
  Sender: FDA-Public Use
  Company Number: PHEH2009US04879

PATIENT
  Sex: Female

DRUGS (2)
  1. EXJADE [Suspect]
     Indication: MYELODYSPLASTIC SYNDROME
     Dosage: 1500 MG, QD, ORAL
     Route: 048
     Dates: start: 20090423, end: 20090513
  2. EXJADE [Suspect]
     Indication: IRON OVERLOAD
     Dosage: 1500 MG, QD, ORAL
     Route: 048
     Dates: start: 20090423, end: 20090513

REACTIONS (5)
  - CHROMATURIA [None]
  - BLOOD BILIRUBIN INCREASED [None]
  - ALANINE AMINOTRANSFERASE INCREASED [None]
  - ASPARTATE AMINOTRANSFERASE INCREASED [None]
  - NAUSEA [None]
